FAERS Safety Report 5217310-0 (Version None)
Quarter: 2007Q1

REPORT INFORMATION
  Report Type: 
  Country: None (occurrence: None)
  Receive Date: 20070124
  Receipt Date: 20051230
  Transmission Date: 20070707
  Serious: No
  Sender: FDA-Public Use
  Company Number: US-GLAXOSMITHKLINE-A0587316A

PATIENT
  Age: 35 Year
  Sex: Female
  Weight: 54.5 kg

DRUGS (2)
  1. PAXIL CR [Suspect]
     Indication: PANIC DISORDER
     Dosage: 12.5MG PER DAY
     Route: 048
     Dates: start: 20051101
  2. NO CONCURRENT MEDICATION [Concomitant]

REACTIONS (2)
  - SOMNOLENCE [None]
  - WEIGHT DECREASED [None]
